FAERS Safety Report 22089062 (Version 1)
Quarter: 2023Q1

REPORT INFORMATION
  Report Type: Spontaneous
  Country: CN (occurrence: CN)
  Receive Date: 20230313
  Receipt Date: 20230313
  Transmission Date: 20230417
  Serious: Yes (Hospitalization)
  Sender: FDA-Public Use
  Company Number: CN-009507513-2303CHN003868

PATIENT
  Age: 82 Year
  Sex: Female

DRUGS (2)
  1. JANUVIA [Suspect]
     Active Substance: SITAGLIPTIN PHOSPHATE
     Indication: Diabetes mellitus
     Dosage: 0.1 G, ONCE A DAY
     Route: 048
     Dates: start: 20210223, end: 20210226
  2. BENSERAZIDE HYDROCHLORIDE\LEVODOPA [Concomitant]
     Active Substance: BENSERAZIDE HYDROCHLORIDE\LEVODOPA
     Indication: Parkinsonism
     Dosage: 0.25 TABLETS BID
     Route: 048
     Dates: start: 20210223, end: 20210226

REACTIONS (3)
  - Drug eruption [Recovering/Resolving]
  - Dermatitis allergic [Recovering/Resolving]
  - Hypersensitivity [Unknown]

NARRATIVE: CASE EVENT DATE: 20210226
